FAERS Safety Report 5357125-6 (Version None)
Quarter: 2007Q2

REPORT INFORMATION
  Report Type: 
  Country: None (occurrence: None)
  Receive Date: 20070612
  Receipt Date: 20070612
  Transmission Date: 20071010
  Serious: Yes (Hospitalization)
  Sender: FDA-Public Use
  Company Number: None

PATIENT
  Age: 51 Year
  Sex: Male

DRUGS (3)
  1. CARBOPLATIN [Suspect]
     Indication: NAUSEA
     Dosage: 816MG OTHER OTHER
     Dates: start: 20070426, end: 20070426
  2. CARBOPLATIN [Suspect]
     Indication: VOMITING
     Dosage: 816MG OTHER OTHER
     Dates: start: 20070426, end: 20070426
  3. ETOPOSIDE [Suspect]
     Dosage: 200MG OTHER

REACTIONS (5)
  - ANAEMIA [None]
  - LEUKOPENIA [None]
  - NAUSEA [None]
  - NEUTROPENIA [None]
  - VOMITING [None]
